FAERS Safety Report 6004087-4 (Version None)
Quarter: 2008Q4

REPORT INFORMATION
  Report Type: 
  Country: None (occurrence: None)
  Receive Date: 20081216
  Receipt Date: 20081211
  Transmission Date: 20090506
  Serious: Yes (Death)
  Sender: FDA-Public Use
  Company Number: FR-JNJFOC-20081203062

PATIENT
  Age: 80 Year
  Sex: Female

DRUGS (15)
  1. DOXORUBICIN HCL [Suspect]
     Indication: BREAST CANCER METASTATIC
     Route: 042
  2. HYDROMORPHONE HCL [Concomitant]
     Route: 065
  3. OXYCODONE [Concomitant]
     Route: 065
  4. PREGABALIN [Concomitant]
     Route: 065
  5. ATENOLOL [Concomitant]
     Route: 065
  6. FLUINDIONE [Concomitant]
     Route: 065
  7. PRAVASTATIN [Concomitant]
     Route: 065
  8. ALLOPURINOL [Concomitant]
     Route: 065
  9. ALDACTAZINE [Concomitant]
     Route: 065
  10. ZOLPIDEM [Concomitant]
     Route: 065
  11. PREDNISONE TAB [Concomitant]
     Route: 065
  12. PYRIDOXINE HCL [Concomitant]
     Route: 065
  13. UNSPECIFIED LOW-MOLECULAR WEIGHT HEPARIN [Concomitant]
     Route: 065
  14. FOLIC ACID [Concomitant]
     Route: 065
  15. FERROUS SULFATE TAB [Concomitant]
     Route: 065

REACTIONS (12)
  - ALTERED STATE OF CONSCIOUSNESS [None]
  - DEHYDRATION [None]
  - DIABETES MELLITUS [None]
  - ESCHERICHIA INFECTION [None]
  - HYPERNATRAEMIA [None]
  - MULTI-ORGAN FAILURE [None]
  - NEUTROPENIA [None]
  - PYREXIA [None]
  - RENAL FAILURE [None]
  - RESPIRATORY ARREST [None]
  - SEPTIC SHOCK [None]
  - THROMBOCYTOPENIA [None]
